FAERS Safety Report 19982422 (Version 3)
Quarter: 2021Q4

REPORT INFORMATION
  Report Type: Report from Study
  Country: CA (occurrence: CA)
  Receive Date: 20211022
  Receipt Date: 20211028
  Transmission Date: 20220303
  Serious: Yes (Other)
  Sender: FDA-Public Use
  Company Number: CA-JNJFOC-20210956772

PATIENT
  Age: 37 Year
  Sex: Female
  Weight: 91 kg

DRUGS (2)
  1. SIMPONI [Suspect]
     Active Substance: GOLIMUMAB
     Indication: Ankylosing spondylitis
     Route: 058
     Dates: start: 20210515
  2. SIMPONI [Suspect]
     Active Substance: GOLIMUMAB

REACTIONS (4)
  - Ankylosing spondylitis [Not Recovered/Not Resolved]
  - Lower respiratory tract infection [Unknown]
  - Pharyngitis [Recovering/Resolving]
  - Sinusitis [Recovering/Resolving]

NARRATIVE: CASE EVENT DATE: 20210927
